FAERS Safety Report 23986085 (Version 1)
Quarter: 2024Q2

REPORT INFORMATION
  Report Type: Spontaneous
  Country: US (occurrence: None)
  Receive Date: 20240618
  Receipt Date: 20240618
  Transmission Date: 20240716
  Serious: Yes (Other)
  Sender: FDA-Public Use
  Company Number: 2024A139850

PATIENT
  Sex: Female

DRUGS (2)
  1. LYNPARZA [Suspect]
     Active Substance: OLAPARIB
     Indication: Neoplasm malignant
     Route: 048
  2. OFEV [Suspect]
     Active Substance: NINTEDANIB
     Indication: Idiopathic pulmonary fibrosis
     Route: 048
     Dates: start: 20240228

REACTIONS (6)
  - Haemoglobin decreased [Unknown]
  - Full blood count decreased [Unknown]
  - Asthenia [Unknown]
  - Fatigue [Recovered/Resolved]
  - Constipation [Unknown]
  - Decreased appetite [Unknown]
